FAERS Safety Report 8272976-6 (Version None)
Quarter: 2012Q2

REPORT INFORMATION
  Report Type: 
  Country: None (occurrence: None)
  Receive Date: 20120411
  Receipt Date: 20120330
  Transmission Date: 20120825
  Serious: Yes (Hospitalization)
  Sender: FDA-Public Use
  Company Number: JP-JNJFOC-20120401967

PATIENT
  Age: 60 Year
  Sex: Female
  Weight: 64 kg

DRUGS (14)
  1. REMICADE [Suspect]
     Indication: RHEUMATOID ARTHRITIS
     Dosage: 10 INFUSIONS TOTAL
     Route: 042
     Dates: start: 20110407
  2. REMICADE [Suspect]
     Route: 042
     Dates: start: 20110210
  3. REMICADE [Suspect]
     Route: 042
     Dates: start: 20100121
  4. MUCOSTA [Concomitant]
     Indication: RHEUMATOID ARTHRITIS
     Dates: start: 20110728
  5. OMEPRAZOLE [Concomitant]
     Indication: RHEUMATOID ARTHRITIS
     Route: 048
     Dates: start: 20110728
  6. RISEDRONATE SODIUM [Concomitant]
     Indication: RHEUMATOID ARTHRITIS
     Route: 048
     Dates: start: 20110728
  7. MOBIC [Concomitant]
     Indication: RHEUMATOID ARTHRITIS
     Route: 048
     Dates: start: 20110728
  8. PREDNISOLONE [Concomitant]
     Route: 048
     Dates: start: 20110210, end: 20110630
  9. BACTRIM [Concomitant]
     Indication: RHEUMATOID ARTHRITIS
     Dosage: DOSAGE: 1 TABLET
     Route: 048
     Dates: start: 20110728
  10. FOLIC ACID [Concomitant]
     Indication: RHEUMATOID ARTHRITIS
     Dates: start: 20110728
  11. RIMATIL [Concomitant]
     Indication: RHEUMATOID ARTHRITIS
     Route: 048
     Dates: start: 20110728
  12. REMICADE [Suspect]
     Route: 042
     Dates: start: 20101209
  13. CELEBREX [Concomitant]
     Indication: RHEUMATOID ARTHRITIS
     Route: 048
     Dates: start: 20110728
  14. METHOTREXATE [Concomitant]
     Route: 048

REACTIONS (1)
  - BREAST CANCER [None]
